FAERS Safety Report 4583955-4 (Version None)
Quarter: 2005Q1

REPORT INFORMATION
  Report Type: 
  Country: None (occurrence: None)
  Receive Date: 20050125
  Receipt Date: 20041021
  Transmission Date: 20050727
  Serious: No
  Sender: FDA-Public Use
  Company Number: USA041081954

PATIENT
  Age: 55 Year
  Sex: Female

DRUGS (1)
  1. FORTEO [Suspect]
     Dates: start: 20040901

REACTIONS (5)
  - BODY TEMPERATURE INCREASED [None]
  - FEELING ABNORMAL [None]
  - MYALGIA [None]
  - NASOPHARYNGITIS [None]
  - VIRAL INFECTION [None]
